FAERS Safety Report 6689222-7 (Version None)
Quarter: 2010Q2

REPORT INFORMATION
  Report Type: 
  Country: None (occurrence: None)
  Receive Date: 20100420
  Receipt Date: 20100204
  Transmission Date: 20101027
  Serious: No
  Sender: FDA-Public Use
  Company Number: US-ALLERGAN-0916291US

PATIENT
  Age: 49 Year
  Sex: Female

DRUGS (4)
  1. LATISSE [Suspect]
     Indication: GROWTH OF EYELASHES
     Dosage: UNK
     Route: 061
     Dates: start: 20090801, end: 20100101
  2. SYNTHROID [Concomitant]
     Indication: THYROID DISORDER
     Dosage: UNK
  3. DAILY VITAMINS [Concomitant]
  4. RESTASIS [Concomitant]
     Indication: DRY EYE

REACTIONS (2)
  - MADAROSIS [None]
  - THERAPEUTIC RESPONSE DECREASED [None]
